FAERS Safety Report 11173081 (Version 1)
Quarter: 2015Q2

REPORT INFORMATION
  Report Type: Spontaneous
  Country: US (occurrence: US)
  Receive Date: 20150608
  Receipt Date: 20150608
  Transmission Date: 20150821
  Serious: No
  Sender: FDA-Public Use
  Company Number: US-PFIZER INC-2015188005

PATIENT
  Sex: Male

DRUGS (1)
  1. AZITHROMYCIN [Suspect]
     Active Substance: AZITHROMYCIN ANHYDROUS
     Dosage: UNK

REACTIONS (10)
  - Candida infection [Unknown]
  - Insomnia [Unknown]
  - Fatigue [Unknown]
  - Ocular hyperaemia [Unknown]
  - Constipation [Unknown]
  - Memory impairment [Unknown]
  - Neuropathy peripheral [Unknown]
  - Rash [Unknown]
  - Eye irritation [Unknown]
  - Pruritus [Unknown]
